FAERS Safety Report 5373881-5 (Version None)
Quarter: 2007Q2

REPORT INFORMATION
  Report Type: 
  Country: None (occurrence: None)
  Receive Date: 20070628
  Receipt Date: 20070619
  Transmission Date: 20071010
  Serious: Yes (Hospitalization)
  Sender: FDA-Public Use
  Company Number: JP-PFIZER INC-2007049253

PATIENT
  Age: 41 Year
  Sex: Male

DRUGS (3)
  1. ZITHROMAC [Suspect]
     Indication: NASOPHARYNGITIS
     Dosage: DAILY DOSE:500MG
     Route: 048
     Dates: start: 20070611, end: 20070612
  2. TRANSAMIN [Concomitant]
     Dosage: TEXT:3 TABLETS/DAY
     Route: 048
     Dates: start: 20070611, end: 20070612
  3. CALONAL [Concomitant]
     Dosage: TEXT:2 TABLETS THREE TIMES DAILY
     Route: 048
     Dates: start: 20070611, end: 20070612

REACTIONS (1)
  - CELLULITIS [None]
